FAERS Safety Report 20103660 (Version 1)
Quarter: 2021Q4

REPORT INFORMATION
  Report Type: Spontaneous
  Country: US (occurrence: None)
  Receive Date: 20211123
  Receipt Date: 20211123
  Transmission Date: 20220303
  Serious: Yes (Other)
  Sender: FDA-Public Use
  Company Number: None

PATIENT
  Age: 27 Year
  Sex: Female
  Weight: 50.4 kg

DRUGS (1)
  1. BIVIGAM [Suspect]
     Active Substance: HUMAN IMMUNOGLOBULIN G
     Indication: Encephalitis autoimmune
     Dosage: OTHER FREQUENCY : DAILY FOR 4 DAYS;?
     Route: 042
     Dates: start: 20211120

REACTIONS (7)
  - Infusion related reaction [None]
  - Erythema [None]
  - Dyspnoea [None]
  - Dizziness [None]
  - Nausea [None]
  - Abdominal pain [None]
  - Tinnitus [None]

NARRATIVE: CASE EVENT DATE: 20211120
